FAERS Safety Report 8387831-0 (Version None)
Quarter: 2012Q2

REPORT INFORMATION
  Report Type: 
  Country: None (occurrence: None)
  Receive Date: 20120525
  Receipt Date: 20120314
  Transmission Date: 20120825
  Serious: No
  Sender: FDA-Public Use
  Company Number: US-BRISTOL-MYERS SQUIBB COMPANY-16454407

PATIENT
  Age: 4 Decade
  Sex: Male

DRUGS (2)
  1. METFORMIN HCL [Suspect]
  2. KOMBIGLYZE XR [Suspect]

REACTIONS (3)
  - OEDEMA PERIPHERAL [None]
  - RASH MACULAR [None]
  - DRUG INEFFECTIVE [None]
